FAERS Safety Report 9026368 (Version 1)
Quarter: 2013Q1

REPORT INFORMATION
  Report Type: Spontaneous
  Country: US (occurrence: US)
  Receive Date: 20130123
  Receipt Date: 20130123
  Transmission Date: 20140127
  Serious: Yes (Other)
  Sender: FDA-Public Use
  Company Number: PHHY2013US005239

PATIENT
  Sex: 0

DRUGS (3)
  1. CLOZAPINE [Suspect]
  2. CHEMOTHERAPEUTICS NOS [Suspect]
  3. RADIATION [Suspect]

REACTIONS (1)
  - Pancytopenia [Unknown]
